FAERS Safety Report 16527883 (Version 3)
Quarter: 2020Q4

REPORT INFORMATION
  Report Type: Report from Study
  Country: US (occurrence: US)
  Receive Date: 20190703
  Receipt Date: 20201110
  Transmission Date: 20210113
  Serious: Yes (Other)
  Sender: FDA-Public Use
  Company Number: PHEH2019US027355

PATIENT
  Age: 24 Year
  Sex: Male
  Weight: 127.3 kg

DRUGS (4)
  1. FLUDARABINE [Concomitant]
     Active Substance: FLUDARABINE PHOSPHATE
     Indication: CHEMOTHERAPY
     Dosage: UNK
     Route: 065
  2. KYMRIAH [Suspect]
     Active Substance: TISAGENLECLEUCEL
     Indication: B-CELL TYPE ACUTE LEUKAEMIA
     Dosage: UNK
     Route: 041
     Dates: start: 20181102
  3. CYCLOPHOSPHAMIDE. [Concomitant]
     Active Substance: CYCLOPHOSPHAMIDE
     Indication: CHEMOTHERAPY
     Dosage: UNK
     Route: 065
  4. KYMRIAH [Suspect]
     Active Substance: TISAGENLECLEUCEL
     Dosage: UNK
     Route: 041
     Dates: start: 20190430

REACTIONS (15)
  - White blood cell count decreased [Recovered/Resolved]
  - Haematocrit decreased [Recovering/Resolving]
  - Lymphocyte count decreased [Unknown]
  - Neutrophil count increased [Unknown]
  - Treatment failure [Unknown]
  - Rhinovirus infection [Unknown]
  - Burkholderia cepacia complex infection [Unknown]
  - Pyrexia [Unknown]
  - Acute lymphocytic leukaemia recurrent [Unknown]
  - Haemoglobin decreased [Recovering/Resolving]
  - Platelet count decreased [Recovered/Resolved]
  - Off label use [Unknown]
  - Cytokine release syndrome [Recovered/Resolved]
  - Platelet count increased [Unknown]
  - Malignant neoplasm progression [Unknown]

NARRATIVE: CASE EVENT DATE: 20190503
